FAERS Safety Report 23144055 (Version 2)
Quarter: 2023Q4

REPORT INFORMATION
  Report Type: Spontaneous
  Country: US (occurrence: US)
  Receive Date: 20231103
  Receipt Date: 20231208
  Transmission Date: 20240110
  Serious: No
  Sender: FDA-Public Use
  Company Number: US-BIOVITRUM-2023-US-017319

PATIENT
  Age: 81 Year
  Sex: Female

DRUGS (2)
  1. DOPTELET [Suspect]
     Active Substance: AVATROMBOPAG MALEATE
     Indication: Immune thrombocytopenia
     Dosage: AS ORDERED?TAKE 1 TABLET DAILY FOR 30 DAYS
     Route: 048
     Dates: start: 202309
  2. DOPTELET [Suspect]
     Active Substance: AVATROMBOPAG MALEATE
     Dosage: DAILY
     Route: 048

REACTIONS (10)
  - Platelet count decreased [Unknown]
  - Abdominal discomfort [Recovering/Resolving]
  - Headache [Unknown]
  - Paranasal sinus discomfort [Unknown]
  - Rhinalgia [Unknown]
  - Oral pain [Unknown]
  - Hypersensitivity [Unknown]
  - Rhinorrhoea [Unknown]
  - Insomnia [Unknown]
  - Fatigue [Unknown]
